FAERS Safety Report 9342039 (Version 2)
Quarter: 2013Q3

REPORT INFORMATION
  Report Type: Spontaneous
  Country: IT (occurrence: None)
  Receive Date: 20130606
  Receipt Date: 20130715
  Transmission Date: 20140515
  Serious: Yes (Other)
  Sender: FDA-Public Use
  Company Number: 2013AP005677

PATIENT
  Age: 42 Year
  Sex: Male

DRUGS (3)
  1. CLARITHROMYCIN [Suspect]
     Dosage: TOTAL
     Route: 048
  2. ESOMEPRAZOLE MAGNESIUM [Suspect]
  3. AMOXICILLIN TRIHYDRATE [Suspect]
     Dosage: TOTAL
     Route: 048

REACTIONS (2)
  - Dyspnoea [None]
  - Rash pruritic [None]
